FAERS Safety Report 14926729 (Version 5)
Quarter: 2018Q3

REPORT INFORMATION
  Report Type: Report from Study
  Country: FR (occurrence: FR)
  Receive Date: 20180523
  Receipt Date: 20180921
  Transmission Date: 20181010
  Serious: Yes (Death, Other)
  Sender: FDA-Public Use
  Company Number: FR-JAZZ-2018-FR-008020

PATIENT

DRUGS (4)
  1. CYCLOSPORINE. [Concomitant]
     Active Substance: CYCLOSPORINE
     Indication: PROPHYLAXIS
     Dosage: 123 MG, QD
     Route: 048
  2. DEFITELIO [Suspect]
     Active Substance: DEFIBROTIDE SODIUM
     Indication: PROPHYLAXIS
     Dosage: 25.71 MG/KG, QD
     Route: 042
     Dates: start: 20170307, end: 20170317
  3. CHOLURSO [Concomitant]
     Active Substance: URSODIOL
     Indication: PROPHYLAXIS
     Dosage: 1000 MG, QD
     Route: 048
  4. ACICLOVIR [Concomitant]
     Active Substance: ACYCLOVIR
     Indication: HERPES ZOSTER
     Dosage: 500 MG, BID
     Route: 048

REACTIONS (3)
  - Pulmonary alveolar haemorrhage [Recovered/Resolved]
  - Respiratory distress [Fatal]
  - Graft versus host disease [Fatal]

NARRATIVE: CASE EVENT DATE: 20170316
